FAERS Safety Report 15097311 (Version 1)
Quarter: 2018Q3

REPORT INFORMATION
  Report Type: Spontaneous
  Country: US (occurrence: US)
  Receive Date: 20180702
  Receipt Date: 20180702
  Transmission Date: 20181010
  Serious: No
  Sender: FDA-Public Use
  Company Number: US-JNJFOC-20180610377

PATIENT
  Age: 77 Year
  Sex: Female
  Weight: 69.85 kg

DRUGS (4)
  1. VISINE A [Suspect]
     Active Substance: NAPHAZOLINE HYDROCHLORIDE\PHENIRAMINE MALEATE
     Indication: MULTIPLE ALLERGIES
     Route: 047
     Dates: start: 20180607, end: 20180607
  2. LUMIGAN [Concomitant]
     Active Substance: BIMATOPROST
     Indication: MULTIPLE ALLERGIES
     Route: 047
  3. CETIRIZINE [Concomitant]
     Active Substance: CETIRIZINE HYDROCHLORIDE
     Indication: MULTIPLE ALLERGIES
     Route: 065
  4. MONTELUKAST [Concomitant]
     Active Substance: MONTELUKAST SODIUM
     Indication: MULTIPLE ALLERGIES
     Route: 065

REACTIONS (3)
  - Vision blurred [Recovering/Resolving]
  - Eye irritation [Recovering/Resolving]
  - Wrong drug administered [Unknown]

NARRATIVE: CASE EVENT DATE: 20180607
